FAERS Safety Report 8211257-3 (Version None)
Quarter: 2012Q1

REPORT INFORMATION
  Report Type: 
  Country: None (occurrence: None)
  Receive Date: 20120229
  Receipt Date: 20110907
  Transmission Date: 20120608
  Serious: Yes (Other)
  Sender: FDA-Public Use
  Company Number: 331273

PATIENT
  Age: 83 Year
  Sex: Male
  Weight: 105.7 kg

DRUGS (1)
  1. NOVOLIN R [Suspect]
     Indication: HYPERKALAEMIA
     Dosage: 800 U, SINGLE, INTRAVENOUS
     Route: 042

REACTIONS (3)
  - BLOOD GLUCOSE DECREASED [None]
  - INCORRECT DOSE ADMINISTERED [None]
  - OFF LABEL USE [None]
